FAERS Safety Report 6571407-1 (Version None)
Quarter: 2010Q1

REPORT INFORMATION
  Report Type: 
  Country: None (occurrence: None)
  Receive Date: 20100205
  Receipt Date: 20100130
  Transmission Date: 20100710
  Serious: Yes (Other)
  Sender: FDA-Public Use
  Company Number: US-PFIZER INC-2010004974

PATIENT
  Sex: Female
  Weight: 87.982 kg

DRUGS (11)
  1. CHANTIX [Suspect]
     Dosage: UNK
  2. VICODIN [Concomitant]
     Dosage: UNK
  3. TOPAMAX [Concomitant]
     Dosage: UNK
  4. HYDROCODONE [Concomitant]
     Dosage: UNK
  5. AMBIEN [Concomitant]
     Dosage: UNK
  6. TIZANIDINE [Concomitant]
     Dosage: UNK
  7. CLONAZEPAM [Concomitant]
     Dosage: UNK
  8. SERTRALINE [Concomitant]
     Dosage: UNK
  9. GABAPENTIN [Concomitant]
     Dosage: UNK
  10. MORPHINE [Concomitant]
     Dosage: UNK
  11. NABUMETONE [Concomitant]
     Dosage: 750 MG, UNK

REACTIONS (1)
  - RENAL DISORDER [None]
